FAERS Safety Report 4742685-6 (Version None)
Quarter: 2005Q3

REPORT INFORMATION
  Report Type: 
  Country: None (occurrence: None)
  Receive Date: 20050811
  Receipt Date: 20050727
  Transmission Date: 20060218
  Serious: Yes (Hospitalization)
  Sender: FDA-Public Use
  Company Number: FR-JNJFOC-20050801034

PATIENT
  Age: 38 Year
  Sex: Female

DRUGS (3)
  1. TRAMADOL HCL [Suspect]
     Indication: PAIN
     Route: 048
  2. ROFERON-A [Suspect]
     Indication: LYMPHOMA
     Route: 058
  3. ARANESP [Suspect]
     Indication: ANAEMIA
     Route: 058

REACTIONS (2)
  - PYREXIA [None]
  - STAPHYLOCOCCAL INFECTION [None]
